FAERS Safety Report 4957094-4 (Version None)
Quarter: 2006Q1

REPORT INFORMATION
  Report Type: 
  Country: None (occurrence: None)
  Receive Date: 20060323
  Receipt Date: 20060307
  Transmission Date: 20060701
  Serious: Yes (Other)
  Sender: FDA-Public Use
  Company Number: US200603002329

PATIENT
  Age: 70 Year
  Sex: Female

DRUGS (3)
  1. CYMBALTA [Suspect]
     Indication: NEURALGIA
     Dosage: 60 MG, 2/D
  2. ARTHROTEC [Concomitant]
  3. OXYCONTIN [Concomitant]

REACTIONS (2)
  - LUPUS-LIKE SYNDROME [None]
  - THERAPY NON-RESPONDER [None]
